FAERS Safety Report 5603039-3 (Version None)
Quarter: 2008Q1

REPORT INFORMATION
  Report Type: 
  Country: None (occurrence: None)
  Receive Date: 20080125
  Receipt Date: 20080123
  Transmission Date: 20080703
  Serious: Yes (Hospitalization)
  Sender: FDA-Public Use
  Company Number: FR-MERCK-0801FRA00072

PATIENT
  Age: 63 Year
  Sex: Male

DRUGS (2)
  1. ZOCOR [Suspect]
     Indication: HYPERCHOLESTEROLAEMIA
     Route: 048
     Dates: end: 20071105
  2. CEFTRIAXONE SODIUM [Concomitant]
     Indication: PYELONEPHRITIS ACUTE
     Route: 042
     Dates: start: 20071001

REACTIONS (6)
  - BLOOD CREATINE PHOSPHOKINASE INCREASED [None]
  - DISORIENTATION [None]
  - FALL [None]
  - MYOGLOBIN BLOOD INCREASED [None]
  - PYELONEPHRITIS ACUTE [None]
  - VISUAL ACUITY REDUCED [None]
